FAERS Safety Report 8476512-0 (Version None)
Quarter: 2012Q2

REPORT INFORMATION
  Report Type: 
  Country: None (occurrence: None)
  Receive Date: 20120628
  Receipt Date: 20120625
  Transmission Date: 20120825
  Serious: Yes (Death)
  Sender: FDA-Public Use
  Company Number: US-B.I. PHARMACEUTICALS,INC./RIDGEFIELD-2012-BP-14038BP

PATIENT
  Age: 70 Year
  Sex: Male

DRUGS (7)
  1. AMLODIPINE [Concomitant]
  2. ASPIRIN [Suspect]
     Dates: start: 20120601, end: 20120601
  3. BETA BLOCKERS [Concomitant]
  4. PRADAXA [Suspect]
     Dates: start: 20120601, end: 20120601
  5. LASIX [Concomitant]
  6. ZOCOR [Concomitant]
     Indication: BLOOD CHOLESTEROL INCREASED
     Route: 048
  7. BLOOD PRESSURE PILLS [Concomitant]

REACTIONS (7)
  - REYE'S SYNDROME [None]
  - PAIN [None]
  - MALAISE [None]
  - RENAL FAILURE [None]
  - INTERNATIONAL NORMALISED RATIO INCREASED [None]
  - HEPATIC FAILURE [None]
  - LIVER FUNCTION TEST ABNORMAL [None]
